FAERS Safety Report 4494434-7 (Version None)
Quarter: 2004Q4

REPORT INFORMATION
  Report Type: 
  Country: None (occurrence: None)
  Receive Date: 20041102
  Receipt Date: 20041015
  Transmission Date: 20050328
  Serious: No
  Sender: FDA-Public Use
  Company Number: JP_040703701

PATIENT
  Age: 65 Year
  Sex: Male

DRUGS (5)
  1. GEMZAR [Suspect]
     Indication: PANCREATIC CARCINOMA
  2. OXYCONTIN [Concomitant]
  3. ANPEC (MORPHINE HYDROCHLORIDE) [Concomitant]
  4. LOXONIN (LOXOPROFEN SODIUM) [Concomitant]
  5. DEPAS (ETIZOLAM) [Concomitant]

REACTIONS (1)
  - LIVER DISORDER [None]
